FAERS Safety Report 15850097 (Version 1)
Quarter: 2019Q1

REPORT INFORMATION
  Report Type: Spontaneous
  Country: US (occurrence: US)
  Receive Date: 20190121
  Receipt Date: 20190121
  Transmission Date: 20190417
  Serious: No
  Sender: FDA-Public Use
  Company Number: US-SA-2019SA011098

PATIENT
  Age: 62 Year

DRUGS (2)
  1. NOVOLOG [Suspect]
     Active Substance: INSULIN ASPART
     Dosage: UNK UNK, UNK
     Route: 065
  2. LANTUS [Suspect]
     Active Substance: INSULIN GLARGINE
     Indication: TYPE 2 DIABETES MELLITUS
     Dosage: 20 U, HS
     Route: 065

REACTIONS (15)
  - Bronchitis [Unknown]
  - Cough [Unknown]
  - Feeling cold [Unknown]
  - Headache [Unknown]
  - Influenza [Unknown]
  - Asthenia [Unknown]
  - Fatigue [Unknown]
  - Dyspnoea [Unknown]
  - Hyperglycaemia [Unknown]
  - Pain [Unknown]
  - Malaise [Unknown]
  - Product storage error [Unknown]
  - Dizziness [Unknown]
  - Nausea [Unknown]
  - Aphonia [Unknown]
